FAERS Safety Report 14204140 (Version 1)
Quarter: 2017Q4

REPORT INFORMATION
  Report Type: Spontaneous
  Country: US (occurrence: US)
  Receive Date: 20171120
  Receipt Date: 20171120
  Transmission Date: 20180321
  Serious: Yes (Other)
  Sender: FDA-Public Use
  Company Number: US-BAYER-2017-215302

PATIENT
  Sex: Female

DRUGS (3)
  1. ALEVE [Suspect]
     Active Substance: NAPROXEN SODIUM
     Indication: ANTIINFLAMMATORY THERAPY
  2. ADVIL [Concomitant]
     Active Substance: IBUPROFEN
  3. ALEVE [Suspect]
     Active Substance: NAPROXEN SODIUM
     Indication: PAIN
     Route: 048
     Dates: start: 20171020, end: 201710

REACTIONS (5)
  - Product contamination microbial [None]
  - Product physical issue [Unknown]
  - Poor quality drug administered [Unknown]
  - Product colour issue [None]
  - Product coating issue [None]

NARRATIVE: CASE EVENT DATE: 20171020
